FAERS Safety Report 15124474 (Version 1)
Quarter: 2018Q3

REPORT INFORMATION
  Report Type: Spontaneous
  Country: US (occurrence: US)
  Receive Date: 20180613
  Receipt Date: 20180613
  Transmission Date: 20181010
  Serious: Yes (Death)
  Sender: FDA-Public Use
  Company Number: None

PATIENT
  Age: 67 Year
  Sex: Male

DRUGS (1)
  1. POMALYST [Suspect]
     Active Substance: POMALIDOMIDE
     Indication: PLASMA CELL MYELOMA
     Route: 048
     Dates: start: 20180307, end: 20180406

REACTIONS (5)
  - Hepatic cancer [None]
  - Pancytopenia [None]
  - Febrile neutropenia [None]
  - Bone lesion [None]
  - Malignant neoplasm progression [None]

NARRATIVE: CASE EVENT DATE: 20180418
